FAERS Safety Report 8683703 (Version 2)
Quarter: 2013Q2

REPORT INFORMATION
  Report Type: Report from Study
  Country: FR (occurrence: FR)
  Receive Date: 20120726
  Receipt Date: 20130517
  Transmission Date: 20140414
  Serious: Yes (Other)
  Sender: FDA-Public Use
  Company Number: PHHO2012FR010938

PATIENT
  Age: 55 Year
  Sex: Female
  Weight: 58 kg

DRUGS (4)
  1. AMN107 [Suspect]
     Indication: CHRONIC MYELOID LEUKAEMIA
     Dosage: 300 MG, BID
     Route: 048
     Dates: start: 20101023
  2. GANFORT [Concomitant]
     Indication: GLAUCOMA
     Dosage: 1 DRP, QD
     Dates: start: 200808
  3. ESOMEPRAZOLE [Concomitant]
     Indication: DUODENAL ULCER
     Dosage: 40 MG, QD
     Route: 048
     Dates: start: 200809
  4. COVERSYL [Concomitant]
     Indication: HYPERTENSION
     Dosage: 2.8 MG, QD
     Route: 048
     Dates: start: 20110824

REACTIONS (1)
  - Hepatic steatosis [Recovering/Resolving]
